FAERS Safety Report 16530120 (Version 1)
Quarter: 2019Q3

REPORT INFORMATION
  Report Type: Spontaneous
  Country: IE (occurrence: IE)
  Receive Date: 20190704
  Receipt Date: 20190704
  Transmission Date: 20191004
  Serious: Yes (Disabling)
  Sender: FDA-Public Use
  Company Number: IE-DSJP-DSE-2019-124761

PATIENT

DRUGS (6)
  1. KALCIPOS D [Concomitant]
     Active Substance: CALCIUM CARBONATE\CHOLECALCIFEROL
     Indication: MINERAL SUPPLEMENTATION
     Dosage: 1 DF
     Dates: start: 20110907, end: 20190612
  2. PROLIA [Concomitant]
     Active Substance: DENOSUMAB
     Indication: PRODUCT USED FOR UNKNOWN INDICATION
     Dosage: 60 MG
     Dates: start: 20111010, end: 20190612
  3. ATORVASTATIN [Concomitant]
     Active Substance: ATORVASTATIN
     Indication: BLOOD CHOLESTEROL ABNORMAL
     Dosage: 20 MG
     Dates: start: 20120430, end: 20190612
  4. TAMBOCOR [Concomitant]
     Active Substance: FLECAINIDE ACETATE
     Indication: ARRHYTHMIA
     Dosage: 100 MG
     Dates: start: 20100123, end: 20190612
  5. LIXIANA [Suspect]
     Active Substance: EDOXABAN TOSYLATE
     Indication: ATRIAL FIBRILLATION
     Dosage: 60 MG
     Route: 048
     Dates: start: 20190511, end: 20190606
  6. KALCIPOS D [Concomitant]
     Active Substance: CALCIUM CARBONATE\CHOLECALCIFEROL
     Indication: VITAMIN SUPPLEMENTATION

REACTIONS (3)
  - Anxiety [Recovered/Resolved]
  - Panic attack [Recovered/Resolved]
  - Fear of death [Recovered/Resolved]

NARRATIVE: CASE EVENT DATE: 20190608
